FAERS Safety Report 5151415-8 (Version None)
Quarter: 2006Q4

REPORT INFORMATION
  Report Type: 
  Country: None (occurrence: None)
  Receive Date: 20061115
  Receipt Date: 20061101
  Transmission Date: 20070319
  Serious: Yes (Hospitalization, Other)
  Sender: FDA-Public Use
  Company Number: US-ELI_LILLY_AND_COMPANY-US200611000445

PATIENT
  Age: 54 Year
  Sex: Female

DRUGS (1)
  1. EVISTA [Suspect]
     Dosage: UNK, UNKNOWN
     Route: 048
     Dates: start: 20050101

REACTIONS (4)
  - BALANCE DISORDER [None]
  - CARDIOVASCULAR INSUFFICIENCY [None]
  - TRANSIENT ISCHAEMIC ATTACK [None]
  - VERTIGO [None]
